FAERS Safety Report 4664112-X (Version None)
Quarter: 2005Q2

REPORT INFORMATION
  Report Type: 
  Country: None (occurrence: None)
  Receive Date: 20050516
  Receipt Date: 20050516
  Transmission Date: 20051028
  Serious: No
  Sender: FDA-Public Use
  Company Number: None

PATIENT
  Age: 50 Year
  Sex: Female
  Weight: 68.9467 kg

DRUGS (11)
  1. FOSAMAX [Suspect]
     Indication: OSTEOPENIA
     Dosage: ONE PO DAILY ON MONDAY THROUGH FRIDAY
     Route: 048
     Dates: start: 20040918
  2. PRAVACHOL [Concomitant]
  3. STRATTERA [Concomitant]
  4. ADDERALL 10 [Concomitant]
  5. ALBUTEROL [Concomitant]
  6. CORGARD [Concomitant]
  7. ENALAPRIL [Concomitant]
  8. VIACTIV CA++/D [Concomitant]
  9. HYDROXYOCHLOROQUINE [Concomitant]
  10. DAILY MVI [Concomitant]
  11. ZOLOFT [Concomitant]

REACTIONS (6)
  - BONE EROSION [None]
  - FISTULA [None]
  - GINGIVAL PAIN [None]
  - NECROSIS [None]
  - PAIN IN JAW [None]
  - TOOTH DISORDER [None]
